FAERS Safety Report 7812610-X (Version None)
Quarter: 2011Q4

REPORT INFORMATION
  Report Type: 
  Country: None (occurrence: None)
  Receive Date: 20111013
  Receipt Date: 20110921
  Transmission Date: 20120403
  Serious: No
  Sender: FDA-Public Use
  Company Number: US-NOVEN-11US003259

PATIENT
  Sex: Female

DRUGS (1)
  1. FENTANYL [Suspect]
     Indication: PAIN
     Dosage: 75 UG/HR X 2, Q72H
     Route: 062
     Dates: start: 20110601

REACTIONS (4)
  - APPLICATION SITE ERYTHEMA [None]
  - APPLICATION SITE PAIN [None]
  - APPLICATION SITE VESICLES [None]
  - DRUG HYPERSENSITIVITY [None]
